FAERS Safety Report 17414029 (Version 1)
Quarter: 2020Q1

REPORT INFORMATION
  Report Type: Spontaneous
  Country: IN (occurrence: IN)
  Receive Date: 20200213
  Receipt Date: 20200213
  Transmission Date: 20200409
  Serious: Yes (Other)
  Sender: FDA-Public Use
  Company Number: NVSC2020IN035345

PATIENT
  Age: 32 Year
  Sex: Male

DRUGS (8)
  1. TOPOTECAN [Suspect]
     Active Substance: TOPOTECAN HYDROCHLORIDE
     Indication: CHEMOTHERAPY
     Dosage: 1 MG, CYCLIC (2ND CYCLE)
     Route: 065
  2. MELPHALAN. [Suspect]
     Active Substance: MELPHALAN
     Indication: CHEMOTHERAPY
     Dosage: 7.5 MG, CYCLIC (2ND CYCLE)
     Route: 065
  3. MELPHALAN. [Suspect]
     Active Substance: MELPHALAN
     Dosage: 7.5 UNK, CYCLIC (4TH CYCLE)
     Route: 065
  4. MELPHALAN. [Suspect]
     Active Substance: MELPHALAN
     Indication: RETINOBLASTOMA
     Dosage: 7.5 MG, CYCLIC (1ST CYCLE)
     Route: 065
  5. TOPOTECAN [Suspect]
     Active Substance: TOPOTECAN HYDROCHLORIDE
     Indication: RETINOBLASTOMA
     Dosage: 1 MG, CYCLIC (1ST CYCLE)
     Route: 065
  6. TOPOTECAN [Suspect]
     Active Substance: TOPOTECAN HYDROCHLORIDE
     Dosage: 1 MG, CYCLIC (4TH CYCLE)
     Route: 065
  7. MELPHALAN. [Suspect]
     Active Substance: MELPHALAN
     Dosage: 7.5 MG, CYCLIC (3RD CYCLE)
     Route: 065
  8. TOPOTECAN [Suspect]
     Active Substance: TOPOTECAN HYDROCHLORIDE
     Dosage: 1 MG, CYCLIC (3RD CYCLE)
     Route: 065

REACTIONS (2)
  - Product use in unapproved indication [Unknown]
  - Vitreous haemorrhage [Unknown]
